FAERS Safety Report 9501472 (Version 2)
Quarter: 2013Q3

REPORT INFORMATION
  Report Type: Spontaneous
  Country: IT (occurrence: IT)
  Receive Date: 20130905
  Receipt Date: 20130909
  Transmission Date: 20140515
  Serious: Yes (Hospitalization)
  Sender: FDA-Public Use
  Company Number: IT-GLAXOSMITHKLINE-B0920354A

PATIENT
  Age: 65 Year
  Sex: Male

DRUGS (1)
  1. ELTROMBOPAG [Suspect]
     Indication: THROMBOCYTOPENIA
     Dosage: 50MG PER DAY
     Route: 048
     Dates: start: 20130807, end: 20130809

REACTIONS (5)
  - Dyspnoea [Unknown]
  - Troponin increased [Unknown]
  - Oxygen saturation decreased [Unknown]
  - Streptococcal infection [Unknown]
  - Pneumonitis [Unknown]
